FAERS Safety Report 8746635 (Version 2)
Quarter: 2012Q4

REPORT INFORMATION
  Report Type: Report from Study
  Country: US (occurrence: US)
  Receive Date: 20120827
  Receipt Date: 20121004
  Transmission Date: 20130627
  Serious: Yes (Other)
  Sender: FDA-Public Use
  Company Number: US-ASTELLAS-2012US004552

PATIENT
  Age: 69 None
  Sex: Female

DRUGS (2)
  1. ERLOTINIB TABLET [Suspect]
     Indication: LUNG NEOPLASM MALIGNANT
     Dosage: 150 mg, UID/QD
     Route: 048
     Dates: start: 20120419
  2. ERLOTINIB TABLET [Suspect]
     Dosage: 150 mg, qod
     Route: 048
     Dates: start: 201206

REACTIONS (3)
  - Non-small cell lung cancer [Unknown]
  - Fatigue [Unknown]
  - Dizziness [Unknown]
